FAERS Safety Report 5738935-X (Version None)
Quarter: 2008Q2

REPORT INFORMATION
  Report Type: 
  Country: None (occurrence: None)
  Receive Date: 20080515
  Receipt Date: 20080506
  Transmission Date: 20081010
  Serious: Yes (Death, Other)
  Sender: FDA-Public Use
  Company Number: US-JNJFOC-20080101875

PATIENT
  Age: 63 Year
  Sex: Female

DRUGS (1)
  1. DOXIL [Suspect]
     Indication: BREAST CANCER METASTATIC
     Route: 050

REACTIONS (2)
  - DEATH [None]
  - NEUROPATHY PERIPHERAL [None]
